FAERS Safety Report 5405238-2 (Version None)
Quarter: 2007Q3

REPORT INFORMATION
  Report Type: 
  Country: None (occurrence: None)
  Receive Date: 20070803
  Receipt Date: 20070723
  Transmission Date: 20080115
  Serious: Yes (Other)
  Sender: FDA-Public Use
  Company Number: BR-ROCHE-508715

PATIENT
  Age: 55 Year
  Sex: Male
  Weight: 120 kg

DRUGS (2)
  1. CLONAZEPAM [Suspect]
     Route: 048
     Dates: start: 20050101
  2. 1 CONCOMITANT DRUG [Concomitant]
     Indication: BLOOD PRESSURE MANAGEMENT

REACTIONS (1)
  - TYPE 1 DIABETES MELLITUS [None]
